FAERS Safety Report 7272777-1 (Version None)
Quarter: 2010Q4

REPORT INFORMATION
  Report Type: 
  Country: None (occurrence: None)
  Receive Date: 20101201
  Receipt Date: 20101108
  Transmission Date: 20110411
  Serious: Yes (Other)
  Sender: FDA-Public Use
  Company Number: 309807

PATIENT
  Age: 18 Year
  Sex: Male

DRUGS (5)
  1. NOVOLOG MIX 70/30 [Suspect]
     Indication: DIABETES MELLITUS
     Dosage: 30 UNITS, THEN 40 UNITS, THEN 30 UNITS, SUBCUTANEOUS
     Route: 058
  2. FEXOFENADINE HCL [Concomitant]
  3. LEVOTHROID [Concomitant]
  4. SINGULAIR [Concomitant]
  5. ADDERALL XR (AMPHETAMINE ASPARTATE, AMFETAMINE SULFATE, DEXAMFETAMINE [Concomitant]

REACTIONS (2)
  - BLOOD GLUCOSE INCREASED [None]
  - WRONG TECHNIQUE IN DRUG USAGE PROCESS [None]
